FAERS Safety Report 16209508 (Version 1)
Quarter: 2019Q2

REPORT INFORMATION
  Report Type: Spontaneous
  Country: FR (occurrence: FR)
  Receive Date: 20190417
  Receipt Date: 20190417
  Transmission Date: 20190711
  Serious: Yes (Hospitalization)
  Sender: FDA-Public Use
  Company Number: FR-009507513-1904FRA006673

PATIENT
  Sex: Female
  Weight: 64 kg

DRUGS (1)
  1. KEYTRUDA [Suspect]
     Active Substance: PEMBROLIZUMAB
     Indication: MALIGNANT MELANOMA
     Dosage: 128 MILLIGRAM, Q3W
     Route: 042
     Dates: start: 20160902, end: 201804

REACTIONS (7)
  - Hepatocellular injury [Recovered/Resolved]
  - Hypokalaemia [Recovered/Resolved]
  - Diarrhoea [Recovered/Resolved]
  - Rash papular [Recovered/Resolved]
  - Vitiligo [Recovering/Resolving]
  - Immune thrombocytopenic purpura [Recovered/Resolved]
  - Uveitis [Recovered/Resolved]

NARRATIVE: CASE EVENT DATE: 20170120
